FAERS Safety Report 4626619-0 (Version None)
Quarter: 2005Q1

REPORT INFORMATION
  Report Type: 
  Country: None (occurrence: None)
  Receive Date: 20050330
  Receipt Date: 20050316
  Transmission Date: 20050727
  Serious: Yes (Other)
  Sender: FDA-Public Use
  Company Number: 200416156BCC

PATIENT
  Age: 64 Year
  Sex: Male
  Weight: 117.9352 kg

DRUGS (4)
  1. ALEVE [Suspect]
     Dosage: 440 MG, ONCE, ORAL
     Route: 048
  2. PHENOBARBITAL [Suspect]
     Dosage: SEE IMAGE
     Route: 048
     Dates: end: 19970216
  3. PHENOBARBITAL [Suspect]
     Dosage: SEE IMAGE
     Route: 048
     Dates: start: 19970217
  4. PHENOBARBITAL [Suspect]
     Dosage: SEE IMAGE
     Route: 048
     Dates: start: 19970321

REACTIONS (5)
  - CONVULSION [None]
  - DISORIENTATION [None]
  - DRUG INTERACTION [None]
  - PANIC ATTACK [None]
  - PANIC DISORDER [None]
